FAERS Safety Report 12897270 (Version 1)
Quarter: 2016Q4

REPORT INFORMATION
  Report Type: Spontaneous
  Country: US (occurrence: US)
  Receive Date: 20161031
  Receipt Date: 20161031
  Transmission Date: 20170207
  Serious: No
  Sender: FDA-Public Use
  Company Number: US-JNJFOC-20160823716

PATIENT
  Age: 45 Year
  Sex: Female
  Weight: 58.97 kg

DRUGS (1)
  1. DURAGESIC [Suspect]
     Active Substance: FENTANYL
     Indication: PAIN
     Route: 062
     Dates: start: 200604

REACTIONS (5)
  - Pain [Not Recovered/Not Resolved]
  - Drug dose omission [Recovered/Resolved]
  - Wrong technique in product usage process [Unknown]
  - Product quality issue [Unknown]
  - Underdose [Unknown]

NARRATIVE: CASE EVENT DATE: 201607
